FAERS Safety Report 9734307 (Version 1)
Quarter: 2013Q4

REPORT INFORMATION
  Report Type: Report from Study
  Country: CL (occurrence: CL)
  Receive Date: 20131206
  Receipt Date: 20131206
  Transmission Date: 20140711
  Serious: Yes (Other)
  Sender: FDA-Public Use
  Company Number: CL-ROCHE-1312113

PATIENT
  Age: 44 Year
  Sex: Female
  Weight: 98 kg

DRUGS (2)
  1. XELODA [Suspect]
     Indication: COLON CANCER
     Route: 048
     Dates: start: 20130522, end: 20131120
  2. OXALIPLATIN [Suspect]
     Indication: COLON CANCER
     Route: 042
     Dates: start: 20130522, end: 20131107

REACTIONS (2)
  - VIIth nerve paralysis [Not Recovered/Not Resolved]
  - Muscle spasms [Not Recovered/Not Resolved]
